FAERS Safety Report 24404802 (Version 1)
Quarter: 2024Q4

REPORT INFORMATION
  Report Type: Spontaneous
  Country: US (occurrence: None)
  Receive Date: 20241004
  Receipt Date: 20241004
  Transmission Date: 20250115
  Serious: Yes (Hospitalization)
  Sender: Public
  Company Number: None

PATIENT
  Age: 69 Year
  Sex: Male
  Weight: 88 kg

DRUGS (2)
  1. RIVAROXABAN [Suspect]
     Active Substance: RIVAROXABAN
     Indication: Vascular operation
     Dosage: 20.00 MG DAILY ORL
     Route: 048
  2. ASPIRIN [Suspect]
     Active Substance: ASPIRIN
     Indication: Vascular operation
     Dosage: 81.00 MG DAILY ORAL?
     Route: 048

REACTIONS (4)
  - Graft thrombosis [None]
  - Haemorrhage [None]
  - Haemorrhoids [None]
  - Transfusion [None]

NARRATIVE: CASE EVENT DATE: 20240409
